FAERS Safety Report 13900090 (Version 1)
Quarter: 2017Q3

REPORT INFORMATION
  Report Type: Spontaneous
  Country: US (occurrence: US)
  Receive Date: 20170824
  Receipt Date: 20170824
  Transmission Date: 20171127
  Serious: No
  Sender: FDA-Public Use
  Company Number: US-BAYER-2017-162315

PATIENT
  Sex: Female

DRUGS (1)
  1. MIRENA [Suspect]
     Active Substance: LEVONORGESTREL
     Dosage: 20 MCG/24HR, CONT
     Route: 015
     Dates: start: 201603

REACTIONS (7)
  - Personality change [Not Recovered/Not Resolved]
  - Mood swings [Not Recovered/Not Resolved]
  - Mood swings [Recovered/Resolved]
  - Personality change [Recovered/Resolved]
  - Loss of libido [Not Recovered/Not Resolved]
  - Acne [Not Recovered/Not Resolved]
  - Mood altered [Not Recovered/Not Resolved]

NARRATIVE: CASE EVENT DATE: 201605
